FAERS Safety Report 8492943-7 (Version None)
Quarter: 2012Q3

REPORT INFORMATION
  Report Type: 
  Country: None (occurrence: None)
  Receive Date: 20120706
  Receipt Date: 20120502
  Transmission Date: 20120928
  Serious: Yes (Other)
  Sender: FDA-Public Use
  Company Number: GB-GLAXOSMITHKLINE-B0799378A

PATIENT
  Sex: Male
  Weight: 78.4 kg

DRUGS (1)
  1. DUTASTERIDE/TAMSULOSIN HYDROCHLORIDE [Suspect]
     Indication: ILL-DEFINED DISORDER
     Route: 065
     Dates: start: 20110701

REACTIONS (9)
  - CANDIDIASIS [None]
  - LIP DRY [None]
  - RASH [None]
  - ERYTHEMA [None]
  - FLATULENCE [None]
  - GLOSSODYNIA [None]
  - PEMPHIGOID [None]
  - ORAL MUCOSAL BLISTERING [None]
  - STOMATITIS [None]
